FAERS Safety Report 11107053 (Version 2)
Quarter: 2015Q3

REPORT INFORMATION
  Report Type: Report from Study
  Country: AU (occurrence: AU)
  Receive Date: 20150512
  Receipt Date: 20150701
  Transmission Date: 20151125
  Serious: Yes (Hospitalization, Other)
  Sender: FDA-Public Use
  Company Number: AU-ABBVIE-15P-008-1368381-00

PATIENT
  Sex: Female

DRUGS (5)
  1. LEVODOPA/CARBIDOPA [Suspect]
     Active Substance: CARBIDOPA\LEVODOPA
     Dosage: MD 12.5ML, CR 4.2ML/HR AND ED 3ML
     Route: 050
     Dates: start: 20150508
  2. LEVODOPA/CARBIDOPA [Suspect]
     Active Substance: CARBIDOPA\LEVODOPA
     Dosage: MD 12.5 CR 4.3 ED 4ML
     Route: 050
     Dates: start: 20150506, end: 20150506
  3. LEVODOPA/CARBIDOPA [Suspect]
     Active Substance: CARBIDOPA\LEVODOPA
     Indication: PRODUCT USED FOR UNKNOWN INDICATION
     Dosage: SEE NARRATIVE
     Route: 050
     Dates: start: 201411
  4. LEVODOPA/CARBIDOPA [Suspect]
     Active Substance: CARBIDOPA\LEVODOPA
     Dosage: MD 12.5, CR 4.6, ED 4ML
     Route: 050
     Dates: start: 20150505, end: 20150505
  5. LEVODOPA/CARBIDOPA [Suspect]
     Active Substance: CARBIDOPA\LEVODOPA
     Dosage: MD 12.5, CR 4.0 ED 3ML
     Route: 050
     Dates: start: 20150507, end: 20150507

REACTIONS (5)
  - Fall [Unknown]
  - Stress [Unknown]
  - Drug effect incomplete [Unknown]
  - Dyskinesia [Unknown]
  - Squamous cell carcinoma of skin [Unknown]
